FAERS Safety Report 10023532 (Version 1)
Quarter: 2014Q1

REPORT INFORMATION
  Report Type: Spontaneous
  Country: US (occurrence: None)
  Receive Date: 20140103
  Receipt Date: 20140103
  Transmission Date: 20141002
  Serious: Yes (Other)
  Sender: FDA-Public Use
  Company Number: 2010S1004283

PATIENT
  Age: 64 Year
  Sex: Female
  Weight: 55.34 kg

DRUGS (7)
  1. FLEET PHOSPHO-SODA [Suspect]
     Indication: COLONOSCOPY
     Dosage: 2 IN 24 HOURA
     Route: 048
     Dates: start: 20070704, end: 20070705
  2. ASPIRIN (ACETYLSALICYLIC ACID) [Concomitant]
  3. CLARINEX (PSEUDOEPHEDRINE SULFATE, LORATADINE) [Concomitant]
  4. DIOVAN [Concomitant]
  5. LUNESTA [Concomitant]
  6. PROPANOLOL (PROPRANOLOL HYDROCHLORIDE) [Concomitant]
  7. IBUPROFEN (IBUPROFEN) [Concomitant]

REACTIONS (7)
  - Diverticulum [None]
  - Haemorrhoids [None]
  - Renal failure acute [None]
  - Renal failure chronic [None]
  - Nephrocalcinosis [None]
  - Large intestine polyp [None]
  - Injury [None]
